FAERS Safety Report 6599348-4 (Version None)
Quarter: 2010Q1

REPORT INFORMATION
  Report Type: 
  Country: None (occurrence: None)
  Receive Date: 20100224
  Receipt Date: 20100215
  Transmission Date: 20100710
  Serious: Yes (Other)
  Sender: FDA-Public Use
  Company Number: IE-BAXTER-2010BH001732

PATIENT
  Sex: Female

DRUGS (6)
  1. GAMMAGARD LIQUID [Suspect]
     Indication: IDIOPATHIC THROMBOCYTOPENIC PURPURA
     Route: 042
  2. TAZOCIN [Concomitant]
  3. GENTAMICIN [Concomitant]
  4. TEICOPLANIN [Concomitant]
  5. PREDNISOLONE [Concomitant]
  6. AMBISOME [Concomitant]

REACTIONS (3)
  - BODY TEMPERATURE DECREASED [None]
  - HYPOTENSION [None]
  - TACHYCARDIA [None]
